FAERS Safety Report 9806512 (Version 1)
Quarter: 2014Q1

REPORT INFORMATION
  Report Type: Spontaneous
  Country: US (occurrence: US)
  Receive Date: 20140109
  Receipt Date: 20140109
  Transmission Date: 20141002
  Serious: Yes (Hospitalization)
  Sender: FDA-Public Use
  Company Number: US-FRI-1000052713

PATIENT
  Sex: Female

DRUGS (3)
  1. NAMENDA [Suspect]
  2. ARICEPT [Suspect]
  3. EXELON PATCH [Suspect]

REACTIONS (2)
  - Myocardial infarction [Unknown]
  - Oxygen saturation decreased [Not Recovered/Not Resolved]
